FAERS Safety Report 5887487-2 (Version None)
Quarter: 2008Q3

REPORT INFORMATION
  Report Type: 
  Country: None (occurrence: None)
  Receive Date: 20080916
  Receipt Date: 20080829
  Transmission Date: 20090109
  Serious: Yes (Other)
  Sender: FDA-Public Use
  Company Number: 20080254

PATIENT
  Age: 74 Year
  Sex: Female

DRUGS (5)
  1. VENOFER [Suspect]
     Indication: IRON DEFICIENCY
     Dosage: 200 MG (3X/WK) INTRAVENOUS
     Route: 042
     Dates: start: 20080701, end: 20080701
  2. VENOFER [Suspect]
     Indication: SERUM FERRITIN DECREASED
     Dosage: 200 MG (3X/WK) INTRAVENOUS
     Route: 042
     Dates: start: 20080701, end: 20080701
  3. INEGY 10/20 (EZETIMIBE, SIMVASTATIN) [Concomitant]
  4. ELTROXIN (LEVOTHYROXIN-SODIUM) [Concomitant]
  5. RANITIDINE HCL [Concomitant]

REACTIONS (1)
  - NEURALGIA [None]
